FAERS Safety Report 8934315 (Version 2)
Quarter: 2014Q2

REPORT INFORMATION
  Report Type: Spontaneous
  Country: US (occurrence: US)
  Receive Date: 20121129
  Receipt Date: 20131024
  Transmission Date: 20141212
  Serious: Yes (Other)
  Sender: FDA-Public Use
  Company Number: US-PFIZER INC-2012298010

PATIENT
  Age: 36 Year
  Sex: Male
  Weight: 81.63 kg

DRUGS (2)
  1. DILANTIN-125 [Suspect]
     Indication: CONVULSION
     Dosage: 100 MG, 4X/DAY
  2. KEPPRA [Concomitant]
     Indication: CONVULSION
     Dosage: 250 MG, 2X/DAY

REACTIONS (1)
  - Drug ineffective [Unknown]
